FAERS Safety Report 15989819 (Version 1)
Quarter: 2019Q1

REPORT INFORMATION
  Report Type: Spontaneous
  Country: US (occurrence: US)
  Receive Date: 20190221
  Receipt Date: 20190221
  Transmission Date: 20190418
  Serious: Yes (Other)
  Sender: FDA-Public Use
  Company Number: None

PATIENT
  Age: 47 Year
  Sex: Male
  Weight: 66.7 kg

DRUGS (7)
  1. CARBAMAZEPINE. [Concomitant]
     Active Substance: CARBAMAZEPINE
     Dates: start: 20160221
  2. FERROUS SULFATE. [Concomitant]
     Active Substance: FERROUS SULFATE
     Dates: start: 20181211
  3. DOXYCYCLINE. [Suspect]
     Active Substance: DOXYCYCLINE
     Indication: BRONCHITIS
     Dosage: ?          OTHER ROUTE:GASTROSTOMY TUBE?
     Dates: start: 20190129, end: 20190130
  4. LAMOTRIGINE. [Concomitant]
     Active Substance: LAMOTRIGINE
     Dates: start: 20180523
  5. DENOSUMAB [Concomitant]
     Active Substance: DENOSUMAB
     Dates: start: 20180221
  6. LACOSAMIDE. [Concomitant]
     Active Substance: LACOSAMIDE
     Dates: start: 20190118
  7. LEVETIRACETAM. [Concomitant]
     Active Substance: LEVETIRACETAM
     Dates: start: 20160221

REACTIONS (5)
  - Rash pruritic [None]
  - Scratch [None]
  - Urticaria [None]
  - Rash macular [None]
  - Drug hypersensitivity [None]

NARRATIVE: CASE EVENT DATE: 20190130
